FAERS Safety Report 10278165 (Version 1)
Quarter: 2014Q3

REPORT INFORMATION
  Report Type: Spontaneous
  Country: BE (occurrence: BE)
  Receive Date: 20140704
  Receipt Date: 20140704
  Transmission Date: 20150326
  Serious: Yes (Other)
  Sender: FDA-Public Use
  Company Number: PHHY2014BE081268

PATIENT
  Age: 64 Year
  Sex: Female

DRUGS (9)
  1. THALIDOMIDE [Concomitant]
     Active Substance: THALIDOMIDE
     Dates: start: 2002
  2. DEXAMETHASONE. [Suspect]
     Active Substance: DEXAMETHASONE
     Dosage: UNK
     Dates: start: 2002
  3. ZOLEDRONATE [Suspect]
     Active Substance: ZOLEDRONIC ACID
     Dosage: 4 MG, QW4
     Route: 042
     Dates: end: 200510
  4. VINCRISTINE [Suspect]
     Active Substance: VINCRISTINE
  5. DOXORUBICIN [Suspect]
     Active Substance: DOXORUBICIN
  6. ISO-BETADINE [Suspect]
     Active Substance: POVIDONE-IODINE
  7. CLODRONATE DISODIUM [Concomitant]
     Active Substance: CLODRONATE DISODIUM
     Dosage: 1600 MG, PER DAY
     Route: 048
     Dates: end: 200305
  8. CYCLOPHOSPHAMIDE. [Concomitant]
     Active Substance: CYCLOPHOSPHAMIDE
     Dates: start: 2001
  9. ETOPOSIDE. [Concomitant]
     Active Substance: ETOPOSIDE
     Dates: start: 2001

REACTIONS (5)
  - Jaw fracture [Unknown]
  - Therapeutic response decreased [Unknown]
  - Osteonecrosis of jaw [Unknown]
  - Tumour fistulisation [Unknown]
  - Oral dysaesthesia [Unknown]

NARRATIVE: CASE EVENT DATE: 200510
